FAERS Safety Report 6229814-2 (Version None)
Quarter: 2009Q2

REPORT INFORMATION
  Report Type: 
  Country: None (occurrence: None)
  Receive Date: 20090615
  Receipt Date: 20090603
  Transmission Date: 20091009
  Serious: Yes (Life-Threatening)
  Sender: FDA-Public Use
  Company Number: DE-PFIZER INC-2009222169

PATIENT
  Age: 28 Year

DRUGS (2)
  1. ECALTA [Suspect]
     Indication: SYSTEMIC CANDIDA
     Dosage: UNK
     Dates: start: 20090501, end: 20090531
  2. SANDIMMUNE [Concomitant]
     Indication: IMMUNOSUPPRESSION

REACTIONS (2)
  - ACUTE HEPATIC FAILURE [None]
  - COMA HEPATIC [None]
